FAERS Safety Report 12924886 (Version 4)
Quarter: 2017Q2

REPORT INFORMATION
  Report Type: Report from Study
  Country: US (occurrence: US)
  Receive Date: 20161109
  Receipt Date: 20170411
  Transmission Date: 20170830
  Serious: Yes (Other)
  Sender: FDA-Public Use
  Company Number: US-B.I. PHARMACEUTICALS,INC./RIDGEFIELD-2016-BI-63409BI

PATIENT
  Age: 86 Year
  Sex: Female
  Weight: 46.27 kg

DRUGS (2)
  1. GILOTRIF [Suspect]
     Active Substance: AFATINIB
     Indication: NON-SMALL CELL LUNG CANCER
     Route: 048
     Dates: end: 20140808
  2. GILOTRIF [Suspect]
     Active Substance: AFATINIB
     Route: 048
     Dates: start: 20160924, end: 20161013

REACTIONS (11)
  - Rash [Not Recovered/Not Resolved]
  - Nasal congestion [Unknown]
  - Epistaxis [Unknown]
  - Pigmentation disorder [Not Recovered/Not Resolved]
  - Diarrhoea [Not Recovered/Not Resolved]
  - Eye irritation [Unknown]
  - Oral pain [Unknown]
  - Rectal haemorrhage [Recovered/Resolved]
  - Conjunctivitis [Not Recovered/Not Resolved]
  - Rash [Unknown]
  - Diarrhoea [Unknown]

NARRATIVE: CASE EVENT DATE: 201609
